FAERS Safety Report 24014176 (Version 1)
Quarter: 2024Q2

REPORT INFORMATION
  Report Type: Spontaneous
  Country: CN (occurrence: CN)
  Receive Date: 20240626
  Receipt Date: 20240626
  Transmission Date: 20240716
  Serious: Yes (Other)
  Sender: FDA-Public Use
  Company Number: CN-STRIDES ARCOLAB LIMITED-2024SP007334

PATIENT
  Age: 4 Year
  Sex: Male
  Weight: 26 kg

DRUGS (6)
  1. PREDNISOLONE [Suspect]
     Active Substance: PREDNISOLONE
     Indication: Generalised pustular psoriasis
     Dosage: 1 MILLIGRAM/KILOGRAM, QD (TABLET)
     Route: 048
  2. DESONIDE [Suspect]
     Active Substance: DESONIDE
     Indication: Generalised pustular psoriasis
     Dosage: UNK
     Route: 061
  3. MOMETASONE [Suspect]
     Active Substance: MOMETASONE
     Indication: Generalised pustular psoriasis
     Dosage: UNK
     Route: 061
  4. DESLORATADINE [Suspect]
     Active Substance: DESLORATADINE
     Indication: Generalised pustular psoriasis
     Dosage: UNK
     Route: 048
  5. DUPILUMAB [Concomitant]
     Active Substance: DUPILUMAB
     Indication: Dermatitis atopic
     Dosage: 600 MILLIGRAM (LOADING DOSE)
     Route: 065
  6. DUPILUMAB [Concomitant]
     Active Substance: DUPILUMAB
     Dosage: 300 MILLIGRAM, EVERY 4 WEEKS
     Route: 065

REACTIONS (1)
  - Drug ineffective [Unknown]
